FAERS Safety Report 16999182 (Version 6)
Quarter: 2019Q4

REPORT INFORMATION
  Report Type: Spontaneous
  Country: US (occurrence: US)
  Receive Date: 20191106
  Receipt Date: 20191227
  Transmission Date: 20200122
  Serious: Yes (Hospitalization, Other)
  Sender: FDA-Public Use
  Company Number: US-SA-2019SA304079

PATIENT
  Age: 50 Year
  Sex: Male
  Weight: 96.16 kg

DRUGS (4)
  1. GILENYA [Concomitant]
     Active Substance: FINGOLIMOD HYDROCHLORIDE
     Indication: MULTIPLE SCLEROSIS
     Route: 048
  2. COPAXONE [Concomitant]
     Active Substance: GLATIRAMER ACETATE
     Indication: RASH
     Route: 058
  3. LEMTRADA [Suspect]
     Active Substance: ALEMTUZUMAB
     Indication: MULTIPLE SCLEROSIS
     Dosage: 12 MG, QD
     Route: 041
     Dates: start: 20180507, end: 20180509
  4. TYSABRI [Concomitant]
     Active Substance: NATALIZUMAB
     Route: 042

REACTIONS (7)
  - Platelet count decreased [Unknown]
  - Contusion [Unknown]
  - Petechiae [Unknown]
  - Angina bullosa haemorrhagica [Unknown]
  - Immune thrombocytopenic purpura [Unknown]
  - Rash macular [Unknown]
  - Skin discolouration [Unknown]

NARRATIVE: CASE EVENT DATE: 20191027
